FAERS Safety Report 19485024 (Version 1)
Quarter: 2021Q3

REPORT INFORMATION
  Report Type: Spontaneous
  Country: US (occurrence: US)
  Receive Date: 20210701
  Receipt Date: 20210701
  Transmission Date: 20211014
  Serious: No
  Sender: FDA-Public Use
  Company Number: US-JNJFOC-20210660193

PATIENT
  Age: 34 Year
  Sex: Female

DRUGS (14)
  1. ZYRTEC [Suspect]
     Active Substance: CETIRIZINE HYDROCHLORIDE
     Indication: PARAESTHESIA
  2. PREDNISONE. [Concomitant]
     Active Substance: PREDNISONE
     Indication: PARAESTHESIA
  3. ZYRTEC [Suspect]
     Active Substance: CETIRIZINE HYDROCHLORIDE
     Indication: PHARYNGEAL HYPOAESTHESIA
     Route: 065
  4. BENADRYL [Concomitant]
     Active Substance: DIPHENHYDRAMINE HYDROCHLORIDE
     Indication: PARAESTHESIA
  5. BENADRYL [Concomitant]
     Active Substance: DIPHENHYDRAMINE HYDROCHLORIDE
     Indication: HYPOAESTHESIA ORAL
  6. PREDNISONE. [Concomitant]
     Active Substance: PREDNISONE
     Indication: TACHYCARDIA
     Dosage: FOR 5 DAYS
     Route: 065
  7. ZYRTEC [Suspect]
     Active Substance: CETIRIZINE HYDROCHLORIDE
     Indication: PHARYNGEAL DISORDER
  8. BENADRYL [Concomitant]
     Active Substance: DIPHENHYDRAMINE HYDROCHLORIDE
     Indication: PHARYNGEAL HYPOAESTHESIA
     Route: 065
  9. PANTOPRAZOLE [Concomitant]
     Active Substance: PANTOPRAZOLE
     Indication: GASTRITIS
     Route: 065
  10. PREDNISONE. [Concomitant]
     Active Substance: PREDNISONE
     Indication: PHARYNGEAL HYPOAESTHESIA
  11. MELOXICAM. [Concomitant]
     Active Substance: MELOXICAM
     Indication: DEPRESSION
     Route: 065
  12. PREDNISONE. [Concomitant]
     Active Substance: PREDNISONE
     Indication: PHARYNGEAL DISORDER
  13. BENADRYL [Concomitant]
     Active Substance: DIPHENHYDRAMINE HYDROCHLORIDE
     Indication: PHARYNGEAL DISORDER
  14. COVID?19 VACCINE [Concomitant]
     Indication: IMMUNISATION
     Dosage: FIRST DOSE
     Route: 065
     Dates: start: 20210318

REACTIONS (6)
  - Tachycardia [Unknown]
  - Hypoaesthesia [Unknown]
  - Product use in unapproved indication [Unknown]
  - Paraesthesia [Unknown]
  - Pharyngeal disorder [Unknown]
  - Allergic reaction to excipient [Unknown]
